FAERS Safety Report 4602416-7 (Version None)
Quarter: 2005Q1

REPORT INFORMATION
  Report Type: 
  Country: None (occurrence: None)
  Receive Date: 20050307
  Receipt Date: 20050223
  Transmission Date: 20050727
  Serious: Yes (Disabling, Other)
  Sender: FDA-Public Use
  Company Number: 200510794BCC

PATIENT
  Sex: Male
  Weight: 104.3273 kg

DRUGS (5)
  1. MILK OF MAGNESIA TAB [Suspect]
     Indication: CONSTIPATION
     Dosage: ORAL
     Route: 048
     Dates: start: 20050221
  2. HYDRALAZINE [Concomitant]
  3. TERAZOSIN [Concomitant]
  4. PRAVACHOL [Concomitant]
  5. NORVASC [Concomitant]

REACTIONS (1)
  - HAEMATOCHEZIA [None]
